FAERS Safety Report 8376349-7 (Version None)
Quarter: 2012Q2

REPORT INFORMATION
  Report Type: 
  Country: None (occurrence: None)
  Receive Date: 20120522
  Receipt Date: 20120516
  Transmission Date: 20120825
  Serious: Yes (Other)
  Sender: FDA-Public Use
  Company Number: US-BAYER-2012-048679

PATIENT
  Sex: Female

DRUGS (1)
  1. MIRENA [Suspect]
     Indication: CONTRACEPTION
     Dosage: 20 MCG/24HR, CONT
     Route: 015
     Dates: start: 20120201

REACTIONS (4)
  - PROCEDURAL PAIN [None]
  - MEDICAL DEVICE PAIN [None]
  - POST PROCEDURAL HAEMORRHAGE [None]
  - OCULAR ICTERUS [None]
